FAERS Safety Report 7070698-0 (Version None)
Quarter: 2010Q4

REPORT INFORMATION
  Report Type: 
  Country: None (occurrence: None)
  Receive Date: 20101029
  Receipt Date: 20101015
  Transmission Date: 20110411
  Serious: Yes (Other)
  Sender: FDA-Public Use
  Company Number: US-TYCO HEALTHCARE/MALLINCKRODT-T201002182

PATIENT
  Sex: Male

DRUGS (9)
  1. TECHNETIUM TC 99M SESTAMIBI [Suspect]
     Indication: CARDIAC STRESS TEST
     Dosage: UNK
     Dates: start: 20101014, end: 20101014
  2. TECHNETIUM TC 99M SESTAMIBI [Suspect]
     Dosage: UNK
     Dates: start: 20101014, end: 20101014
  3. ULTRA-TECHNEKOW [Suspect]
     Indication: CARDIAC STRESS TEST
     Dosage: UNK
     Dates: start: 20101014, end: 20101014
  4. PLAVIX [Concomitant]
  5. ASPIRIN [Concomitant]
  6. LIPITOR [Concomitant]
  7. FLOMAX [Concomitant]
  8. CENTRUM                            /00554501/ [Concomitant]
  9. NIASPAN [Concomitant]

REACTIONS (2)
  - AGEUSIA [None]
  - DYSGEUSIA [None]
